FAERS Safety Report 8104728-1 (Version None)
Quarter: 2012Q1

REPORT INFORMATION
  Report Type: 
  Country: None (occurrence: None)
  Receive Date: 20120130
  Receipt Date: 20120123
  Transmission Date: 20120608
  Serious: Yes (Hospitalization)
  Sender: FDA-Public Use
  Company Number: FR-PFIZER INC-2012017590

PATIENT
  Age: 25 Year
  Sex: Female

DRUGS (5)
  1. CYTARABINE [Suspect]
     Dosage: UNK
     Route: 042
     Dates: start: 20051001, end: 20070301
  2. PROCORALAN [Concomitant]
     Dosage: UNK
     Route: 048
     Dates: start: 20110801
  3. TRISENOX [Suspect]
     Dosage: UNK
     Route: 042
     Dates: start: 20071009, end: 20080404
  4. VESANOID [Suspect]
     Dosage: UNK
     Route: 048
     Dates: start: 20051001, end: 20070301
  5. CORDARONE [Concomitant]
     Dosage: UNK
     Route: 048
     Dates: start: 20100101

REACTIONS (1)
  - MITRAL VALVE INCOMPETENCE [None]
